FAERS Safety Report 9925157 (Version 2)
Quarter: 2014Q1

REPORT INFORMATION
  Report Type: Spontaneous
  Country: US (occurrence: US)
  Receive Date: 20140226
  Receipt Date: 20140226
  Transmission Date: 20141002
  Serious: Yes (Death)
  Sender: FDA-Public Use
  Company Number: US-GE HEALTHCARE MEDICAL DIAGNOSTICS-OSCN-PR-0806S-0379

PATIENT
  Sex: Male
  Weight: 71 kg

DRUGS (12)
  1. OMNISCAN [Suspect]
     Indication: RENAL CYST
     Route: 042
     Dates: start: 20030610, end: 20030610
  2. OMNISCAN [Suspect]
     Indication: HAEMATURIA
  3. GADOLINIUM (UNSPECIFIED) [Suspect]
     Indication: PRODUCT USED FOR UNKNOWN INDICATION
     Dates: start: 20021118, end: 20021118
  4. MAGNEVIST [Suspect]
     Route: 042
     Dates: start: 20021008, end: 20021008
  5. MAGNEVIST [Suspect]
     Dates: start: 20030721, end: 20030721
  6. PREDNISONE [Concomitant]
  7. FERRLECIT [Concomitant]
  8. PARICALCITOL [Concomitant]
  9. EPOETIN [Concomitant]
  10. CALCITRIOL [Concomitant]
  11. LISINOPRIL [Concomitant]
  12. PENTOXIFYLLINE [Concomitant]

REACTIONS (1)
  - Nephrogenic systemic fibrosis [Fatal]
